FAERS Safety Report 4976017-5 (Version None)
Quarter: 2006Q2

REPORT INFORMATION
  Report Type: 
  Country: None (occurrence: None)
  Receive Date: 20060412
  Receipt Date: 20060403
  Transmission Date: 20061013
  Serious: Yes (Hospitalization)
  Sender: FDA-Public Use
  Company Number: 200611391GDS

PATIENT
  Age: 69 Year
  Sex: Male

DRUGS (1)
  1. APROTININ [Suspect]
     Indication: HAEMORRHAGE CONTROL

REACTIONS (3)
  - HEMIPARESIS [None]
  - PNEUMONIA [None]
  - POST PROCEDURAL COMPLICATION [None]
